FAERS Safety Report 6173311-X (Version None)
Quarter: 2009Q2

REPORT INFORMATION
  Report Type: 
  Country: None (occurrence: None)
  Receive Date: 20090430
  Receipt Date: 20090424
  Transmission Date: 20091009
  Serious: Yes (Hospitalization, Other)
  Sender: FDA-Public Use
  Company Number: PHHO2009DE01624

PATIENT
  Age: 69 Year
  Sex: Female
  Weight: 55 kg

DRUGS (3)
  1. ZOLEDRONIC ACID [Suspect]
     Indication: BREAST CANCER
     Dosage: 4 MG, EVERY 3 MONTHS
     Route: 042
     Dates: start: 20080826
  2. VITAMIN D [Concomitant]
  3. CALCIUM [Concomitant]

REACTIONS (4)
  - BONE OPERATION [None]
  - FACIAL PAIN [None]
  - OSTEONECROSIS [None]
  - TOOTHACHE [None]
